FAERS Safety Report 10792592 (Version 1)
Quarter: 2015Q1

REPORT INFORMATION
  Report Type: Spontaneous
  Country: US (occurrence: None)
  Receive Date: 20150211
  Receipt Date: 20150211
  Transmission Date: 20150721
  Serious: Yes (Hospitalization)
  Sender: FDA-Public Use
  Company Number: 1224850-2015-00007

PATIENT
  Age: 55 Year
  Sex: Male
  Weight: 99.4 kg

DRUGS (15)
  1. ZOCOR [Concomitant]
     Active Substance: SIMVASTATIN
  2. LIBERTY CYCLER [Concomitant]
     Active Substance: DEVICE
  3. LIBERTY CYCLER SET [Concomitant]
  4. COREG [Concomitant]
     Active Substance: CARVEDILOL
  5. PAXIL [Concomitant]
     Active Substance: PAROXETINE HYDROCHLORIDE
  6. NORVASC [Concomitant]
     Active Substance: AMLODIPINE BESYLATE
  7. OMEPRAZOLE. [Concomitant]
     Active Substance: OMEPRAZOLE
  8. OXYCODONE [Concomitant]
     Active Substance: OXYCODONE
  9. OSCAL [Concomitant]
     Active Substance: CALCIUM CARBONATE
  10. NYSTATIN. [Concomitant]
     Active Substance: NYSTATIN
  11. CATAPRES [Concomitant]
     Active Substance: CLONIDINE HYDROCHLORIDE
  12. COLCHICINE. [Concomitant]
     Active Substance: COLCHICINE
  13. MAGNESIUM [Concomitant]
     Active Substance: MAGNESIUM
  14. PHOSLO [Suspect]
     Active Substance: CALCIUM ACETATE
     Indication: CHRONIC KIDNEY DISEASE
     Dosage: 667MG X UNKNOWN
     Dates: start: 20130405, end: 20131108
  15. PRINIVIL [Concomitant]
     Active Substance: LISINOPRIL

REACTIONS (7)
  - Device related infection [None]
  - Pain [None]
  - Nausea [None]
  - Diarrhoea [None]
  - Abdominal pain [None]
  - Peritonitis [None]
  - Vomiting [None]

NARRATIVE: CASE EVENT DATE: 20130707
